FAERS Safety Report 22521151 (Version 1)
Quarter: 2023Q2

REPORT INFORMATION
  Report Type: Spontaneous
  Country: US (occurrence: US)
  Receive Date: 20230605
  Receipt Date: 20230605
  Transmission Date: 20230722
  Serious: Yes (Hospitalization)
  Sender: FDA-Public Use
  Company Number: US-MYLANLABS-2023M1058058

PATIENT
  Age: 17 Year
  Sex: Male

DRUGS (4)
  1. APIXABAN [Suspect]
     Active Substance: APIXABAN
     Indication: Tumour thrombosis
     Dosage: UNK
     Route: 065
  2. APIXABAN [Suspect]
     Active Substance: APIXABAN
     Indication: Vena cava thrombosis
  3. HEPARIN [Suspect]
     Active Substance: HEPARIN SODIUM
     Indication: Tumour thrombosis
     Dosage: UNK, INFUSION
     Route: 042
  4. HEPARIN [Suspect]
     Active Substance: HEPARIN SODIUM
     Indication: Vena cava thrombosis

REACTIONS (2)
  - Disease progression [Unknown]
  - Drug ineffective [Unknown]
